FAERS Safety Report 6229645-3 (Version None)
Quarter: 2009Q2

REPORT INFORMATION
  Report Type: 
  Country: None (occurrence: None)
  Receive Date: 20090615
  Receipt Date: 20090605
  Transmission Date: 20091009
  Serious: Yes (Hospitalization)
  Sender: FDA-Public Use
  Company Number: B0406696A

PATIENT
  Sex: Female

DRUGS (4)
  1. FLOLAN [Suspect]
     Indication: PULMONARY HYPERTENSION
     Route: 042
     Dates: start: 20010716
  2. WARFARIN SODIUM [Suspect]
     Indication: PULMONARY HYPERTENSION
     Dosage: 2.5MG PER DAY
     Route: 048
     Dates: end: 20011114
  3. MERCAZOLE [Concomitant]
     Indication: HYPERTHYROIDISM
     Dosage: 30MG PER DAY
     Route: 048
     Dates: start: 20011116, end: 20011125
  4. PROPACIL [Concomitant]
     Indication: HYPERTHYROIDISM
     Dosage: 450MG PER DAY
     Route: 048
     Dates: start: 20011126, end: 20020128

REACTIONS (6)
  - ARTHRALGIA [None]
  - HAEMATEMESIS [None]
  - HAEMODYNAMIC INSTABILITY [None]
  - HAEMOPTYSIS [None]
  - HYPERTHYROIDISM [None]
  - PRODUCTIVE COUGH [None]
